FAERS Safety Report 23252916 (Version 1)
Quarter: 2023Q4

REPORT INFORMATION
  Report Type: Report from Study
  Country: CL (occurrence: CL)
  Receive Date: 20231201
  Receipt Date: 20231201
  Transmission Date: 20240110
  Serious: Yes (Death, Hospitalization)
  Sender: FDA-Public Use
  Company Number: CL-GILEAD-2023-0652636

PATIENT
  Sex: Female
  Weight: 54 kg

DRUGS (17)
  1. SACITUZUMAB GOVITECAN-HZIY [Suspect]
     Active Substance: SACITUZUMAB GOVITECAN-HZIY
     Indication: Triple negative breast cancer
     Dosage: 540 MG
     Route: 042
     Dates: start: 20231116, end: 20231116
  2. SACITUZUMAB GOVITECAN-HZIY [Suspect]
     Active Substance: SACITUZUMAB GOVITECAN-HZIY
     Dosage: 540 MG
     Route: 042
     Dates: start: 20231122, end: 20231122
  3. PEMBROLIZUMAB [Suspect]
     Active Substance: PEMBROLIZUMAB
     Indication: Triple negative breast cancer
     Dosage: 200 MG
     Route: 042
     Dates: start: 20231116, end: 20231116
  4. AMLODIPINE [Concomitant]
     Active Substance: AMLODIPINE BESYLATE
     Indication: Hypertension
     Route: 048
     Dates: start: 2008
  5. FLUTICASONE PROPIONATE\SALMETEROL XINAFOATE [Concomitant]
     Active Substance: FLUTICASONE PROPIONATE\SALMETEROL XINAFOATE
     Indication: Asthma
     Route: 055
     Dates: start: 2008
  6. LOSARTAN [Concomitant]
     Active Substance: LOSARTAN
     Indication: Hypertension
     Route: 048
     Dates: start: 2008
  7. METFORMIN [Concomitant]
     Active Substance: METFORMIN HYDROCHLORIDE
     Indication: Type 2 diabetes mellitus
     Route: 048
     Dates: start: 2008
  8. SALMETEROL [Concomitant]
     Active Substance: SALMETEROL
     Indication: Asthma
     Route: 055
     Dates: start: 2008
  9. NPH INSULIN [Concomitant]
     Active Substance: INSULIN BEEF
     Indication: Type 2 diabetes mellitus
     Route: 058
     Dates: start: 2021
  10. LEVOTHYROXINE [Concomitant]
     Active Substance: LEVOTHYROXINE
     Indication: Hypothyroidism
     Route: 048
     Dates: start: 2022
  11. OMEPRAZOLE [Concomitant]
     Active Substance: OMEPRAZOLE
     Indication: Prophylaxis
     Route: 048
     Dates: start: 2022
  12. CELECOXIB [Concomitant]
     Active Substance: CELECOXIB
     Indication: Cancer pain
     Route: 048
     Dates: start: 202309
  13. DEXAMETHASONE [Concomitant]
     Active Substance: DEXAMETHASONE
     Indication: Prophylaxis
     Route: 042
     Dates: start: 20231116, end: 20231116
  14. DEXAMETHASONE [Concomitant]
     Active Substance: DEXAMETHASONE
     Dosage: 8 MG
     Route: 042
     Dates: start: 20231122, end: 20231122
  15. ONDANSETRON [Concomitant]
     Active Substance: ONDANSETRON
     Indication: Prophylaxis
     Dosage: 8 MG
     Route: 042
     Dates: start: 20231116, end: 20231116
  16. ONDANSETRON [Concomitant]
     Active Substance: ONDANSETRON
     Route: 042
     Dates: start: 20231122, end: 20231122
  17. EMPAGLIFLOZIN\METFORMIN HYDROCHLORIDE [Concomitant]
     Active Substance: EMPAGLIFLOZIN\METFORMIN HYDROCHLORIDE
     Indication: Type 2 diabetes mellitus
     Route: 048
     Dates: start: 20231117

REACTIONS (2)
  - Multiple organ dysfunction syndrome [Fatal]
  - Febrile neutropenia [Recovering/Resolving]

NARRATIVE: CASE EVENT DATE: 20231126
